FAERS Safety Report 9928112 (Version 2)
Quarter: 2014Q2

REPORT INFORMATION
  Report Type: Spontaneous
  Country: IL (occurrence: IL)
  Receive Date: 20140227
  Receipt Date: 20140418
  Transmission Date: 20141212
  Serious: Yes (Hospitalization)
  Sender: FDA-Public Use
  Company Number: IL-VERTEX PHARMACEUTICALS INC-2014-000994

PATIENT
  Age: 46 Year
  Sex: Female

DRUGS (8)
  1. INCIVO [Suspect]
     Indication: CHRONIC HEPATITIS C
     Dosage: 2250 MG, QD
     Route: 048
     Dates: start: 20131110, end: 20140119
  2. PEGINTERFERON ALFA-2A [Suspect]
     Indication: CHRONIC HEPATITIS C
     Dosage: 180 ?G, QW
     Route: 058
     Dates: start: 20131110, end: 20140122
  3. PEGINTERFERON ALFA-2A [Suspect]
     Route: 058
     Dates: start: 20131110, end: 20140121
  4. RIBAVIRIN [Suspect]
     Indication: CHRONIC HEPATITIS C
     Dosage: 600 MG, QD
     Route: 048
     Dates: start: 20131110, end: 20140122
  5. NORMITEN [Concomitant]
     Dates: start: 2012
  6. CODEINE +PHENYLTOLOXAMINE [Concomitant]
     Dates: start: 20140112, end: 20140117
  7. ROXITHROMYCIN [Concomitant]
     Dates: start: 20140117
  8. ATENOLOL [Concomitant]

REACTIONS (7)
  - Pyrexia [Unknown]
  - Urticaria [Recovered/Resolved]
  - Gamma-glutamyltransferase increased [Unknown]
  - Blood alkaline phosphatase increased [Unknown]
  - Eosinophil count increased [Unknown]
  - C-reactive protein increased [Unknown]
  - Haemoglobin decreased [Unknown]
